FAERS Safety Report 6484748-3 (Version None)
Quarter: 2009Q4

REPORT INFORMATION
  Report Type: 
  Country: None (occurrence: None)
  Receive Date: 20091209
  Receipt Date: 20090603
  Transmission Date: 20100525
  Serious: No
  Sender: FDA-Public Use
  Company Number: US-AMGEN-KDL350061

PATIENT
  Sex: Male
  Weight: 102.2 kg

DRUGS (1)
  1. ENBREL [Suspect]
     Indication: PSORIASIS
     Route: 058
     Dates: start: 20080501

REACTIONS (4)
  - GINGIVITIS [None]
  - HYPERSOMNIA [None]
  - LETHARGY [None]
  - NAUSEA [None]
